FAERS Safety Report 9380915 (Version 2)
Quarter: 2013Q3

REPORT INFORMATION
  Report Type: Spontaneous
  Country: US (occurrence: US)
  Receive Date: 20130703
  Receipt Date: 20130731
  Transmission Date: 20140515
  Serious: No
  Sender: FDA-Public Use
  Company Number: US-009507513-1306USA011733

PATIENT
  Sex: Male

DRUGS (7)
  1. ZIOPTAN [Suspect]
     Dosage: 2 GTT, QPM
     Route: 047
     Dates: start: 20130522
  2. INSULIN [Concomitant]
     Dosage: UNK
  3. GLUCOPHAGE [Concomitant]
     Dosage: UNK
  4. PRINIVIL [Concomitant]
     Dosage: UNK
     Route: 048
  5. ZOCOR [Concomitant]
     Dosage: UNK
     Route: 048
  6. SYNTHROID [Concomitant]
     Dosage: UNK
  7. ASPIRIN [Concomitant]
     Dosage: UNK

REACTIONS (5)
  - Increased viscosity of nasal secretion [Not Recovered/Not Resolved]
  - Dry throat [Not Recovered/Not Resolved]
  - Dry mouth [Not Recovered/Not Resolved]
  - Nasal congestion [Not Recovered/Not Resolved]
  - Wrong technique in drug usage process [Unknown]
